FAERS Safety Report 7005270-1 (Version None)
Quarter: 2010Q3

REPORT INFORMATION
  Report Type: 
  Country: None (occurrence: None)
  Receive Date: 20100921
  Receipt Date: 20100917
  Transmission Date: 20110219
  Serious: Yes (Other)
  Sender: FDA-Public Use
  Company Number: PHHY2010CA02676

PATIENT
  Sex: Female

DRUGS (11)
  1. SANDOSTATIN LAR [Suspect]
     Indication: CROHN'S DISEASE
     Dosage: 30 MG EVERY 4 WEEKS
     Route: 030
     Dates: start: 20060315, end: 20070824
  2. SANDOSTATIN LAR [Suspect]
     Dosage: 30 MG, QMO
     Route: 030
     Dates: end: 20070824
  3. SANDOSTATIN LAR [Suspect]
     Dosage: 20 MG, QMO
  4. VITAMIN B-12 [Concomitant]
  5. CALCIUM [Concomitant]
  6. CORTICOSTEROIDS [Concomitant]
  7. LEVOTHYROXINE SODIUM [Concomitant]
  8. LORAZEPAM [Concomitant]
  9. VITAMIN B-12 [Concomitant]
  10. IRON [Concomitant]
  11. PREDNISONE [Concomitant]

REACTIONS (14)
  - ABDOMINAL ADHESIONS [None]
  - ABDOMINAL PAIN [None]
  - ANAEMIA [None]
  - COUGH [None]
  - CROHN'S DISEASE [None]
  - FATIGUE [None]
  - HAEMOGLOBIN DECREASED [None]
  - HAEMOPTYSIS [None]
  - INCREASED UPPER AIRWAY SECRETION [None]
  - NASOPHARYNGITIS [None]
  - OROPHARYNGEAL PAIN [None]
  - SMALL INTESTINAL OBSTRUCTION [None]
  - TONGUE ULCERATION [None]
  - ULCER [None]
